APPROVED DRUG PRODUCT: RENAGEL
Active Ingredient: SEVELAMER HYDROCHLORIDE
Strength: 403MG
Dosage Form/Route: CAPSULE;ORAL
Application: N020926 | Product #001
Applicant: GENZYME CORP
Approved: Oct 30, 1998 | RLD: No | RS: No | Type: DISCN